FAERS Safety Report 7984022-X (Version None)
Quarter: 2011Q4

REPORT INFORMATION
  Report Type: 
  Country: None (occurrence: None)
  Receive Date: 20111216
  Receipt Date: 20111213
  Transmission Date: 20120403
  Serious: Yes (Disabling, Other)
  Sender: FDA-Public Use
  Company Number: GB-PFIZER INC-2011303934

PATIENT
  Age: 51 Year
  Sex: Male

DRUGS (3)
  1. ATORVASTATIN CALCIUM [Suspect]
     Indication: HYPERCHOLESTEROLAEMIA
     Dosage: 40 MG, UNK
     Route: 048
     Dates: start: 20110701, end: 20110901
  2. OLANZAPINE [Concomitant]
     Dosage: UNK
  3. ESCITALOPRAM [Concomitant]
     Dosage: UNK

REACTIONS (2)
  - SUICIDAL IDEATION [None]
  - DEPRESSION [None]
